FAERS Safety Report 9928586 (Version 1)
Quarter: 2014Q1

REPORT INFORMATION
  Report Type: Spontaneous
  Country: US (occurrence: None)
  Receive Date: 20140226
  Receipt Date: 20140226
  Transmission Date: 20141002
  Serious: Yes (Other)
  Sender: FDA-Public Use
  Company Number: None

PATIENT
  Sex: 0

DRUGS (1)
  1. RISPERDAL [Suspect]

REACTIONS (8)
  - Pain [None]
  - Anxiety [None]
  - Pain [None]
  - Back pain [None]
  - Emotional distress [None]
  - Vitamin D deficiency [None]
  - Impaired healing [None]
  - Breast enlargement [None]
